FAERS Safety Report 6520802-5 (Version None)
Quarter: 2009Q4

REPORT INFORMATION
  Report Type: 
  Country: None (occurrence: None)
  Receive Date: 20091229
  Receipt Date: 20091217
  Transmission Date: 20100525
  Serious: Yes (Life-Threatening, Hospitalization, Disabling, Other)
  Sender: FDA-Public Use
  Company Number: DE-AMGEN-UK380811

PATIENT
  Age: 72 Year

DRUGS (4)
  1. NEULASTA [Suspect]
     Indication: BREAST CANCER
  2. DOCETAXEL [Concomitant]
     Route: 041
     Dates: start: 20090907
  3. EPIRUBICIN [Concomitant]
     Route: 041
     Dates: start: 20090907
  4. CYCLOPHOSPHAMIDE [Concomitant]
     Route: 041
     Dates: start: 20090907

REACTIONS (1)
  - NEUTROPENIA [None]
